FAERS Safety Report 18464395 (Version 3)
Quarter: 2021Q4

REPORT INFORMATION
  Report Type: Report from Study
  Country: CA (occurrence: CA)
  Receive Date: 20201104
  Receipt Date: 20211227
  Transmission Date: 20220303
  Serious: No
  Sender: FDA-Public Use
  Company Number: CA-JNJFOC-20201052194

PATIENT
  Age: 26 Year
  Sex: Male
  Weight: 136.3 kg

DRUGS (2)
  1. STELARA [Suspect]
     Active Substance: USTEKINUMAB
     Indication: Crohn^s disease
     Route: 058
     Dates: start: 20150625
  2. STELARA [Suspect]
     Active Substance: USTEKINUMAB
     Dosage: LAST DOSE RECEIVED ON 22-NOV-2021
     Route: 058
     Dates: start: 201609

REACTIONS (3)
  - COVID-19 [Recovered/Resolved]
  - Product use issue [Unknown]
  - Off label use [Unknown]

NARRATIVE: CASE EVENT DATE: 20150625
